FAERS Safety Report 7469492-8 (Version None)
Quarter: 2011Q2

REPORT INFORMATION
  Report Type: 
  Country: None (occurrence: None)
  Receive Date: 20110510
  Receipt Date: 20110504
  Transmission Date: 20111010
  Serious: Yes (Hospitalization)
  Sender: FDA-Public Use
  Company Number: US-SANOFI-AVENTIS-2011SA019068

PATIENT
  Age: 71 Year
  Sex: Male
  Weight: 72.7 kg

DRUGS (3)
  1. ALLEGRA [Suspect]
     Route: 048
     Dates: start: 19950401, end: 20110409
  2. ALLEGRA [Suspect]
     Route: 048
     Dates: start: 19950401, end: 20110409
  3. SINGULAIR [Suspect]
     Route: 065

REACTIONS (4)
  - DRUG INEFFECTIVE [None]
  - COUGH [None]
  - RHINORRHOEA [None]
  - DIVERTICULITIS [None]
